FAERS Safety Report 5739357-8 (Version None)
Quarter: 2008Q2

REPORT INFORMATION
  Report Type: 
  Country: None (occurrence: None)
  Receive Date: 20080513
  Receipt Date: 20080429
  Transmission Date: 20081010
  Serious: Yes (Death, Hospitalization)
  Sender: FDA-Public Use
  Company Number: 2007002008

PATIENT
  Age: 52 Year
  Sex: Male

DRUGS (8)
  1. ERLOTINIB [Suspect]
     Indication: NON-SMALL CELL LUNG CANCER
     Dosage: 150 MG, QD, ORAL
     Route: 048
     Dates: start: 20070530, end: 20070710
  2. PF-3512676 [Suspect]
     Dosage: 19 MG, DAYS 1, 8 AND 15 OF 21 DAY CYCLE)
     Dates: start: 20070530, end: 20070703
  3. HYDROCODONE/GUAIFENESIN [Concomitant]
  4. ACETAMINOPHEN [Concomitant]
  5. DIPHENHYDRAMINE HCL [Concomitant]
  6. CEPHALEXIN [Concomitant]
  7. IBUPROFEN [Concomitant]
  8. LOPERAMIDE HCL [Concomitant]

REACTIONS (8)
  - ANAEMIA [None]
  - BLOOD ALBUMIN DECREASED [None]
  - BLOOD ALKALINE PHOSPHATASE INCREASED [None]
  - DEHYDRATION [None]
  - DIARRHOEA [None]
  - METASTASES TO LUNG [None]
  - PNEUMONIA [None]
  - PYREXIA [None]
